FAERS Safety Report 26137408 (Version 1)
Quarter: 2025Q4

REPORT INFORMATION
  Report Type: Spontaneous
  Country: CA (occurrence: CA)
  Receive Date: 20251209
  Receipt Date: 20251209
  Transmission Date: 20260117
  Serious: Yes (Hospitalization, Other)
  Sender: PURDUE
  Company Number: CA-NAPPMUNDI-GBR-2025-0131106

PATIENT
  Age: 69 Year
  Sex: Female

DRUGS (6)
  1. MORPHINE SULFATE [Suspect]
     Active Substance: MORPHINE SULFATE
     Indication: Pain
     Dosage: 1 MG/ML
     Route: 037
     Dates: start: 202501
  2. MORPHINE SULFATE [Suspect]
     Active Substance: MORPHINE SULFATE
     Dosage: DOSE INCREASED BY 50 %
     Route: 037
     Dates: start: 202501
  3. MORPHINE SULFATE [Suspect]
     Active Substance: MORPHINE SULFATE
     Dosage: 0.105 MG/ML
     Route: 037
     Dates: start: 202501
  4. MORPHINE SULFATE [Suspect]
     Active Substance: MORPHINE SULFATE
     Indication: Pain
     Dosage: 1 MG/ML
     Route: 037
     Dates: start: 202501
  5. MORPHINE SULFATE [Suspect]
     Active Substance: MORPHINE SULFATE
     Dosage: DOSE INCREASED BY 50 %
     Route: 037
     Dates: start: 202501
  6. MORPHINE SULFATE [Suspect]
     Active Substance: MORPHINE SULFATE
     Dosage: 0.105 MG/ML
     Route: 037
     Dates: start: 202501

REACTIONS (3)
  - Rhabdomyolysis [Recovering/Resolving]
  - Fall [Recovering/Resolving]
  - Device programming error [Unknown]

NARRATIVE: CASE EVENT DATE: 20250101
